FAERS Safety Report 6602626-3 (Version None)
Quarter: 2010Q1

REPORT INFORMATION
  Report Type: 
  Country: None (occurrence: None)
  Receive Date: 20100225
  Receipt Date: 20100217
  Transmission Date: 20100710
  Serious: Yes (Death, Other)
  Sender: FDA-Public Use
  Company Number: GB-AMGEN-US192276

PATIENT
  Sex: Female
  Weight: 62 kg

DRUGS (6)
  1. ENBREL [Suspect]
     Indication: RHEUMATOID ARTHRITIS
     Route: 058
     Dates: start: 20040622, end: 20060327
  2. METHOTREXATE [Concomitant]
     Indication: RHEUMATOID ARTHRITIS
     Route: 048
     Dates: start: 20000608, end: 20060327
  3. MIXTARD HUMAN 70/30 [Concomitant]
     Indication: DIABETES MELLITUS
     Dosage: UNKNOWN
     Route: 058
     Dates: start: 20010701
  4. METFORMIN HCL [Concomitant]
     Indication: DIABETES MELLITUS
     Route: 048
     Dates: start: 20000101
  5. BEZALIP [Concomitant]
     Dosage: UNKNOWN
  6. DISTALGESIC [Concomitant]
     Dosage: UNKNOWN

REACTIONS (4)
  - CEREBRAL INFARCTION [None]
  - CONDITION AGGRAVATED [None]
  - DIABETES MELLITUS [None]
  - SMALL CELL LUNG CANCER METASTATIC [None]
